FAERS Safety Report 14945335 (Version 1)
Quarter: 2018Q2

REPORT INFORMATION
  Report Type: Spontaneous
  Country: US (occurrence: US)
  Receive Date: 20180529
  Receipt Date: 20180529
  Transmission Date: 20180711
  Serious: No
  Sender: FDA-Public Use
  Company Number: US-BIODELIVERY SCIENCES INTERNATIONAL-2018BDSI0017

PATIENT
  Age: 65 Year
  Sex: Female
  Weight: 56.3 kg

DRUGS (2)
  1. BUPRENORPHINE. [Suspect]
     Active Substance: BUPRENORPHINE
     Route: 002
     Dates: start: 20180111
  2. BUPRENORPHINE. [Suspect]
     Active Substance: BUPRENORPHINE
     Indication: HEADACHE
     Route: 002
     Dates: start: 20171219, end: 20180110

REACTIONS (5)
  - Intentional product use issue [Unknown]
  - Drug ineffective for unapproved indication [Unknown]
  - Oral administration complication [Unknown]
  - Product solubility abnormal [Unknown]
  - Product adhesion issue [Unknown]

NARRATIVE: CASE EVENT DATE: 201712
